FAERS Safety Report 6284160-6 (Version None)
Quarter: 2009Q3

REPORT INFORMATION
  Report Type: 
  Country: None (occurrence: None)
  Receive Date: 20090722
  Receipt Date: 20090708
  Transmission Date: 20100115
  Serious: Yes (Disabling, Other)
  Sender: FDA-Public Use
  Company Number: 1000007556

PATIENT
  Age: 23 Year
  Sex: Female

DRUGS (5)
  1. CITALOPRAM HYDROBROMIDE [Suspect]
     Indication: HEADACHE
     Dosage: 20 MG (20 MG, 1 IN 1 D), ORAL
     Route: 048
     Dates: start: 20090604, end: 20090604
  2. AMPHETAMINE SULFATE [Concomitant]
  3. COCAINE [Concomitant]
  4. IBUPROFEN [Concomitant]
  5. ACETAMINOPHEN [Concomitant]

REACTIONS (3)
  - DIZZINESS [None]
  - DYSPNOEA [None]
  - THROAT TIGHTNESS [None]
